FAERS Safety Report 4784417-1 (Version None)
Quarter: 2005Q3

REPORT INFORMATION
  Report Type: 
  Country: None (occurrence: None)
  Receive Date: 20050928
  Receipt Date: 20050915
  Transmission Date: 20060218
  Serious: Yes (Other)
  Sender: FDA-Public Use
  Company Number: 2005107684

PATIENT
  Age: 51 Year
  Sex: Male
  Weight: 75.2971 kg

DRUGS (10)
  1. ACCUPRIL [Suspect]
     Indication: HYPERTENSION
     Dosage: 20  MG (20 MG, DAILY INTERVAL:  EVERY DAY), ORAL
     Route: 048
  2. LIPITOR [Suspect]
     Indication: BLOOD CHOLESTEROL INCREASED
     Dosage: 10 MG (10 MG, DAILY INTERVAL:  EVERY DAY), ORAL
     Route: 048
  3. TIOTROPIUM BROMIDE (TIOTROPIUM BROMIDE) [Suspect]
     Indication: EMPHYSEMA
     Dates: end: 20050101
  4. DURAGESIC-100 [Concomitant]
  5. NITRODUR II (GYCERYL TRINITRATE) [Concomitant]
  6. NITROGLYCERIN [Concomitant]
  7. OXYCODONE HCL [Concomitant]
  8. ALBUTEROL [Concomitant]
  9. IPRATROPIUM BROMIDE [Concomitant]
  10. ADVAIR DISKUS 100/50 [Concomitant]

REACTIONS (4)
  - ARTERIAL OCCLUSIVE DISEASE [None]
  - BLUE TOE SYNDROME [None]
  - CAROTID ARTERY OCCLUSION [None]
  - EMPHYSEMA [None]
